FAERS Safety Report 8215943-0 (Version None)
Quarter: 2012Q1

REPORT INFORMATION
  Report Type: 
  Country: None (occurrence: None)
  Receive Date: 20120316
  Receipt Date: 20120313
  Transmission Date: 20120608
  Serious: Yes (Hospitalization)
  Sender: FDA-Public Use
  Company Number: US-BAYER-2012-025422

PATIENT
  Age: 39 Year
  Weight: 76.644 kg

DRUGS (7)
  1. IBUPROFEN [Concomitant]
  2. TRAMADOL HCL [Concomitant]
     Indication: PAIN MANAGEMENT
  3. ACETAMINOPHEN [Concomitant]
  4. PLAVIX [Concomitant]
  5. IRON [Concomitant]
  6. CIPROFLOXACIN HYDROCHLORIDE [Concomitant]
  7. DROSPIRENONE AND ETHINYL ESTRADIOL [Suspect]
     Dosage: UNK
     Dates: start: 20100601

REACTIONS (1)
  - DEEP VEIN THROMBOSIS [None]
